FAERS Safety Report 4983709-0 (Version None)
Quarter: 2006Q1

REPORT INFORMATION
  Report Type: 
  Country: None (occurrence: None)
  Receive Date: 20060301
  Receipt Date: 20060103
  Transmission Date: 20060701
  Serious: No
  Sender: FDA-Public Use
  Company Number: S06-USA-00123-01

PATIENT
  Age: 83 Year
  Sex: Female
  Weight: 63.5036 kg

DRUGS (2)
  1. NAMENDA [Suspect]
  2. RAZADYNE [Suspect]
     Indication: DEMENTIA ALZHEIMER'S TYPE
     Dosage: 12 MG BID PO
     Route: 048
     Dates: start: 20020101

REACTIONS (1)
  - WEIGHT INCREASED [None]
